FAERS Safety Report 21496996 (Version 1)
Quarter: 2022Q4

REPORT INFORMATION
  Report Type: Spontaneous
  Country: US (occurrence: US)
  Receive Date: 20221023
  Receipt Date: 20221023
  Transmission Date: 20230113
  Serious: Yes (Life-Threatening, Hospitalization, Other)
  Sender: FDA-Public Use
  Company Number: US-drreddys-SPO/USA/22/0156199

PATIENT
  Age: 56 Year
  Sex: Female

DRUGS (3)
  1. CEFAZOLIN [Suspect]
     Active Substance: CEFAZOLIN
     Indication: Antibiotic prophylaxis
  2. FENTANYL CITRATE [Concomitant]
     Active Substance: FENTANYL CITRATE
     Indication: Induction of anaesthesia
  3. MIDAZOLAM [Concomitant]
     Active Substance: MIDAZOLAM
     Indication: Induction of anaesthesia

REACTIONS (1)
  - Anaphylactic reaction [Recovering/Resolving]
